FAERS Safety Report 4585012-X (Version None)
Quarter: 2005Q1

REPORT INFORMATION
  Report Type: 
  Country: None (occurrence: None)
  Receive Date: 20050217
  Receipt Date: 20041203
  Transmission Date: 20050727
  Serious: No
  Sender: FDA-Public Use
  Company Number: US-GLAXOSMITHKLINE-A0536043A

PATIENT
  Age: 80 Year
  Sex: Male

DRUGS (5)
  1. WELLBUTRIN XL [Suspect]
     Indication: DEPRESSION
     Dosage: 300MG PER DAY
     Route: 048
     Dates: start: 20041121, end: 20041127
  2. DIGOXIN [Concomitant]
  3. LANOXIN [Concomitant]
  4. ACTOS [Concomitant]
  5. GLYBURIDE [Concomitant]

REACTIONS (1)
  - SENSORY DISTURBANCE [None]
